FAERS Safety Report 7054072-9 (Version None)
Quarter: 2010Q4

REPORT INFORMATION
  Report Type: 
  Country: None (occurrence: None)
  Receive Date: 20101020
  Receipt Date: 20101012
  Transmission Date: 20110411
  Serious: Yes (Life-Threatening, Hospitalization, Other)
  Sender: FDA-Public Use
  Company Number: US-BAYER-201036845NA

PATIENT
  Age: 68 Year
  Sex: Male

DRUGS (1)
  1. AVELOX [Suspect]
     Indication: PRODUCTIVE COUGH
     Route: 048

REACTIONS (8)
  - ANAPHYLACTIC SHOCK [None]
  - ASTHENIA [None]
  - BLOOD PRESSURE SYSTOLIC DECREASED [None]
  - HEART INJURY [None]
  - PAIN [None]
  - PRESYNCOPE [None]
  - RASH ERYTHEMATOUS [None]
  - STRESS [None]
